FAERS Safety Report 6169297-4 (Version None)
Quarter: 2009Q2

REPORT INFORMATION
  Report Type: 
  Country: None (occurrence: None)
  Receive Date: 20090424
  Receipt Date: 20090416
  Transmission Date: 20091009
  Serious: Yes (Death)
  Sender: FDA-Public Use
  Company Number: 2009AL002228

PATIENT
  Sex: Male

DRUGS (1)
  1. DIGOXIN [Suspect]
     Dates: start: 20080201

REACTIONS (7)
  - ANXIETY [None]
  - ECONOMIC PROBLEM [None]
  - EMOTIONAL DISORDER [None]
  - INJURY [None]
  - MENTAL DISORDER [None]
  - PAIN [None]
  - THERAPEUTIC AGENT TOXICITY [None]
